FAERS Safety Report 9397892 (Version 4)
Quarter: 2013Q3

REPORT INFORMATION
  Report Type: Report from Study
  Country: ES (occurrence: ES)
  Receive Date: 20130712
  Receipt Date: 20130812
  Transmission Date: 20140515
  Serious: Yes (Hospitalization)
  Sender: FDA-Public Use
  Company Number: ES-PFIZER INC-2013199471

PATIENT
  Age: 77 Year
  Sex: Male

DRUGS (14)
  1. CARBOPLATIN [Suspect]
     Indication: NON-SMALL CELL LUNG CANCER
     Dosage: 750 MG, CYCLIC (DAY 1 OF 21 DAY CYCLE)
     Route: 042
     Dates: start: 20130528
  2. CARBOPLATIN [Suspect]
     Dosage: 450 MG, CYCLIC (DAY 1 OF 21 DAY CYCLE)
     Route: 042
     Dates: start: 20130625
  3. PEMETREXED [Suspect]
     Indication: NON-SMALL CELL LUNG CANCER
     Dosage: 965 MG, CYCLIC (DAY 1 OF 21 DAY CYCLE)
     Route: 042
     Dates: start: 20130528
  4. PEMETREXED [Suspect]
     Dosage: 700 MG, CYCLIC (DAY 1 OF 21 DAY CYCLE)
     Dates: start: 20130625
  5. TRAMADOL [Concomitant]
     Indication: PAIN
     Dosage: UNK
     Dates: start: 20130618
  6. OLMESARTAN [Concomitant]
     Indication: HYPERTENSION
     Dosage: UNK
     Dates: start: 20130523
  7. RANITIDINE [Concomitant]
     Indication: PROPHYLAXIS
     Dosage: UNK
     Dates: start: 20130521
  8. METOCLOPRAMIDE [Concomitant]
     Indication: PROPHYLAXIS OF NAUSEA AND VOMITING
     Dosage: UNK
     Dates: start: 20130515
  9. LORAZEPAM [Concomitant]
     Indication: ANXIETY
     Dosage: UNK
     Dates: start: 20130527
  10. ZOMETA [Concomitant]
     Indication: METASTASES TO BONE
     Dosage: UNK
     Dates: start: 20130507
  11. VITAMIN B12 [Concomitant]
     Indication: PROPHYLAXIS
     Dosage: UNK
     Dates: start: 20130507
  12. FOLIC ACID [Concomitant]
     Indication: PROPHYLAXIS
     Dosage: UNK
     Dates: start: 20130507
  13. DUODART [Concomitant]
     Indication: BENIGN PROSTATIC HYPERPLASIA
     Dosage: UNK
     Dates: start: 20130618
  14. NYSTATIN [Concomitant]
     Dosage: UNK
     Dates: start: 20130618

REACTIONS (2)
  - Pulmonary embolism [Recovering/Resolving]
  - Respiratory tract infection [Recovering/Resolving]
